FAERS Safety Report 18117472 (Version 6)
Quarter: 2020Q4

REPORT INFORMATION
  Report Type: Report from Study
  Country: None (occurrence: GB)
  Receive Date: 20200805
  Receipt Date: 20201101
  Transmission Date: 20210113
  Serious: Yes (Hospitalization, Other)
  Sender: FDA-Public Use
  Company Number: GB-ABBVIE-20K-167-3510631-00

PATIENT
  Age: 66 Year
  Sex: Female

DRUGS (2)
  1. DUODOPA [Suspect]
     Active Substance: CARBIDOPA\LEVODOPA
     Indication: PARKINSON^S DISEASE
     Dosage: 100ML CASSETTE DAILY 5MG/1ML 20MG/1ML
     Route: 050
  2. DUODOPA [Suspect]
     Active Substance: CARBIDOPA\LEVODOPA
     Route: 050
     Dates: start: 202007

REACTIONS (11)
  - Fall [Recovering/Resolving]
  - Confusional state [Unknown]
  - Bone disorder [Unknown]
  - Device breakage [Unknown]
  - Hip fracture [Recovering/Resolving]
  - Walking disability [Unknown]
  - Parkinson^s disease [Unknown]
  - Device deployment issue [Recovering/Resolving]
  - Seborrhoea [Unknown]
  - Skin disorder [Unknown]
  - Device dislocation [Unknown]

NARRATIVE: CASE EVENT DATE: 2020
